FAERS Safety Report 24326567 (Version 1)
Quarter: 2024Q3

REPORT INFORMATION
  Report Type: Spontaneous
  Country: US (occurrence: US)
  Receive Date: 20240917
  Receipt Date: 20240917
  Transmission Date: 20241017
  Serious: No
  Sender: SAREPTA THERAPEUTICS
  Company Number: US-SAREPTA THERAPEUTICS INC.-SRP2024-004854

PATIENT
  Age: 17 Year
  Sex: Male

DRUGS (2)
  1. VYONDYS 53 [Suspect]
     Active Substance: GOLODIRSEN
     Indication: Product used for unknown indication
     Dosage: 3000 MILLIGRAM, WEEKLY
     Route: 042
     Dates: end: 20240701
  2. VYONDYS 53 [Suspect]
     Active Substance: GOLODIRSEN
     Dosage: 3000 MILLIGRAM, WEEKLY
     Route: 042
     Dates: start: 20240714

REACTIONS (2)
  - Poor venous access [Unknown]
  - Device issue [Unknown]

NARRATIVE: CASE EVENT DATE: 20240701
